FAERS Safety Report 16894996 (Version 1)
Quarter: 2019Q4

REPORT INFORMATION
  Report Type: Spontaneous
  Country: US (occurrence: US)
  Receive Date: 20191007
  Receipt Date: 20191007
  Transmission Date: 20200122
  Serious: No
  Sender: FDA-Public Use
  Company Number: None

PATIENT
  Age: 43 Year
  Sex: Female
  Weight: 93.6 kg

DRUGS (13)
  1. PERPHENAZINE. [Suspect]
     Active Substance: PERPHENAZINE
     Indication: POST-TRAUMATIC STRESS DISORDER
     Dosage: ?          QUANTITY:1 TABLET(S);?
     Route: 048
  2. ZYPREXA [Concomitant]
     Active Substance: OLANZAPINE
  3. GENTAMYCIN SULFATE EAR DROPS [Concomitant]
  4. MUSCLE RUBS [Concomitant]
  5. COGENTIN [Concomitant]
     Active Substance: BENZTROPINE MESYLATE
  6. MULTIVITAMINS [Concomitant]
     Active Substance: VITAMINS
  7. INGREZA [Concomitant]
  8. PROGESTERONE. [Concomitant]
     Active Substance: PROGESTERONE
  9. NEXIUM [Concomitant]
     Active Substance: ESOMEPRAZOLE MAGNESIUM
  10. PROPRANOLOL [Concomitant]
     Active Substance: PROPRANOLOL HYDROCHLORIDE
  11. DICLOFENAC TOPICAL GEL [Concomitant]
  12. PERPHENAZINE. [Suspect]
     Active Substance: PERPHENAZINE
     Indication: BIPOLAR DISORDER
     Dosage: ?          QUANTITY:1 TABLET(S);?
     Route: 048
  13. INTROPIUM NASAL SPRAY [Concomitant]

REACTIONS (16)
  - Hyperhidrosis [None]
  - Limb injury [None]
  - Dry mouth [None]
  - Lip dry [None]
  - Condition aggravated [None]
  - Restless legs syndrome [None]
  - Dry throat [None]
  - Chills [None]
  - Dry eye [None]
  - Feeling of body temperature change [None]
  - Bruxism [None]
  - Tremor [None]
  - Migraine [None]
  - Tardive dyskinesia [None]
  - Speech disorder [None]
  - Device physical property issue [None]

NARRATIVE: CASE EVENT DATE: 20190817
